FAERS Safety Report 14204082 (Version 2)
Quarter: 2018Q1

REPORT INFORMATION
  Report Type: Spontaneous
  Country: US (occurrence: US)
  Receive Date: 20171120
  Receipt Date: 20180109
  Transmission Date: 20180508
  Serious: No
  Sender: FDA-Public Use
  Company Number: US-ASTRAZENECA-2017SF16699

PATIENT
  Age: 30583 Day
  Sex: Male
  Weight: 74.8 kg

DRUGS (2)
  1. SYMBICORT [Suspect]
     Active Substance: BUDESONIDE\FORMOTEROL FUMARATE DIHYDRATE
     Indication: PULMONARY VALVE DISEASE
     Dosage: 160/4.5MCG, TWO TIMES A DAY
     Route: 055
     Dates: start: 20171110
  2. SYMBICORT [Suspect]
     Active Substance: BUDESONIDE\FORMOTEROL FUMARATE DIHYDRATE
     Indication: DYSPNOEA
     Dosage: 160/4.5MCG, TWO TIMES A DAY
     Route: 055
     Dates: start: 20171110

REACTIONS (5)
  - Product quality issue [Unknown]
  - Intentional product misuse [Not Recovered/Not Resolved]
  - Off label use [Unknown]
  - Malaise [Not Recovered/Not Resolved]
  - Product use in unapproved indication [Unknown]

NARRATIVE: CASE EVENT DATE: 20171111
